FAERS Safety Report 8075331-7 (Version None)
Quarter: 2012Q1

REPORT INFORMATION
  Report Type: 
  Country: None (occurrence: None)
  Receive Date: 20120127
  Receipt Date: 20111121
  Transmission Date: 20120608
  Serious: No
  Sender: FDA-Public Use
  Company Number: US-MYLANLABS-2011S1024200

PATIENT
  Age: 54 Year
  Sex: Female

DRUGS (1)
  1. CLONIDINE [Suspect]
     Dosage: QWEEK
     Route: 062

REACTIONS (1)
  - APPLICATION SITE ERYTHEMA [None]
